FAERS Safety Report 24124474 (Version 1)
Quarter: 2024Q3

REPORT INFORMATION
  Report Type: Report from Study
  Country: US (occurrence: None)
  Receive Date: 20240723
  Receipt Date: 20240723
  Transmission Date: 20241016
  Serious: Yes (Other)
  Sender: ASTRAZENECA
  Company Number: 2020SF54986

PATIENT
  Sex: Female

DRUGS (1)
  1. LYNPARZA [Suspect]
     Active Substance: OLAPARIB
     Indication: Ovarian cancer
     Route: 048

REACTIONS (17)
  - Myelosuppression [Not Recovered/Not Resolved]
  - Palpitations [Not Recovered/Not Resolved]
  - Memory impairment [Unknown]
  - Brain fog [Unknown]
  - Neuropathy peripheral [Not Recovered/Not Resolved]
  - Angina pectoris [Unknown]
  - Chromaturia [Unknown]
  - Dry eye [Unknown]
  - Stomatitis [Unknown]
  - Photosensitivity reaction [Unknown]
  - Sinus congestion [Not Recovered/Not Resolved]
  - Mood swings [Unknown]
  - Depressed mood [Unknown]
  - Chest discomfort [Not Recovered/Not Resolved]
  - Nausea [Unknown]
  - Fatigue [Unknown]
  - Product dose omission issue [Unknown]
